FAERS Safety Report 18535823 (Version 1)
Quarter: 2020Q4

REPORT INFORMATION
  Report Type: Spontaneous
  Country: CA (occurrence: CA)
  Receive Date: 20201123
  Receipt Date: 20201123
  Transmission Date: 20210114
  Serious: Yes (Death)
  Sender: FDA-Public Use
  Company Number: CA-009507513-2011CAN012640

PATIENT
  Age: 60 Year
  Sex: Female
  Weight: 54.43 kg

DRUGS (4)
  1. KEYTRUDA [Suspect]
     Active Substance: PEMBROLIZUMAB
     Indication: LUNG NEOPLASM MALIGNANT
  2. SAPHRIS [Concomitant]
     Active Substance: ASENAPINE MALEATE
  3. KEYTRUDA [Suspect]
     Active Substance: PEMBROLIZUMAB
     Indication: ADENOCARCINOMA
  4. ATENOLOL. [Concomitant]
     Active Substance: ATENOLOL

REACTIONS (5)
  - Acute kidney injury [Fatal]
  - Small intestinal obstruction [Fatal]
  - Febrile neutropenia [Fatal]
  - Pneumonitis [Fatal]
  - Septic shock [Fatal]
